FAERS Safety Report 5944280-X (Version None)
Quarter: 2008Q4

REPORT INFORMATION
  Report Type: 
  Country: None (occurrence: None)
  Receive Date: 20081105
  Receipt Date: 20081024
  Transmission Date: 20090506
  Serious: Yes (Hospitalization)
  Sender: FDA-Public Use
  Company Number: DSU-2008-01768

PATIENT
  Age: 84 Year
  Sex: Female
  Weight: 84.369 kg

DRUGS (4)
  1. EVOXAC [Suspect]
     Indication: DRY MOUTH
     Dosage: 9- MG (30 MG, TID), PER ORAL
     Route: 048
     Dates: start: 20030101, end: 20081014
  2. LYRICA [Suspect]
     Indication: NEUROPATHY PERIPHERAL
  3. TRICOR [Concomitant]
  4. MULTI-VITAMINS [Concomitant]

REACTIONS (6)
  - CUSHINGOID [None]
  - DRY EYE [None]
  - DRY THROAT [None]
  - EAR PAIN [None]
  - JOINT SWELLING [None]
  - LIP DRY [None]
